FAERS Safety Report 9052955 (Version 2)
Quarter: 2013Q2

REPORT INFORMATION
  Report Type: Report from Study
  Country: JP (occurrence: JP)
  Receive Date: 20130208
  Receipt Date: 20130403
  Transmission Date: 20140414
  Serious: Yes (Life-Threatening, Hospitalization)
  Sender: FDA-Public Use
  Company Number: JP-ABBOTT-13P-087-1046734-00

PATIENT
  Age: 59 Year
  Sex: Male

DRUGS (6)
  1. LIPACREON [Suspect]
     Indication: PANCREATIC INSUFFICIENCY
     Route: 048
     Dates: start: 20111226, end: 20120412
  2. MILNACIPRAN HYDROCHLORIDE [Concomitant]
     Indication: SURGERY
     Route: 048
     Dates: start: 20111231, end: 20120412
  3. TELMISARTAN [Concomitant]
     Indication: SURGERY
     Route: 048
     Dates: start: 20120106, end: 20120412
  4. DAIKENCHUTO [Concomitant]
     Indication: PRODUCT USED FOR UNKNOWN INDICATION
     Dosage: HERBAL MEDICINE
     Route: 048
     Dates: start: 20120106, end: 20120412
  5. BROTIZOLAM [Concomitant]
     Indication: SURGERY
     Route: 048
     Dates: start: 20120106, end: 20120412
  6. CLOSTRIDIUM BUTYRICUM [Concomitant]
     Indication: PRODUCT USED FOR UNKNOWN INDICATION
     Route: 048
     Dates: start: 20120206, end: 20120412

REACTIONS (1)
  - Cardiac failure congestive [Recovering/Resolving]
